FAERS Safety Report 9701051 (Version 2)
Quarter: 2014Q4

REPORT INFORMATION
  Report Type: Spontaneous
  Country: US (occurrence: None)
  Receive Date: 20131119
  Receipt Date: 20141001
  Transmission Date: 20150529
  Serious: Yes (Death)
  Sender: FDA-Public Use
  Company Number: 1713747-2013-99976

PATIENT
  Sex: Male

DRUGS (4)
  1. LIBERTY TUBING [Concomitant]
  2. LIBERTY CYCLER [Concomitant]
  3. DELFLEX [Suspect]
     Active Substance: CALCIUM CHLORIDE\DEXTROSE MONOHYDRATE\MAGNESIUM CHLORIDE\SODIUM CHLORIDE\SODIUM LACTATE
     Indication: PERITONEAL DIALYSIS
     Dosage: PERITONEAL DIALYSIS
     Dates: start: 20131101
  4. DELFLEX [Suspect]
     Active Substance: CALCIUM CHLORIDE\DEXTROSE MONOHYDRATE\MAGNESIUM CHLORIDE\SODIUM CHLORIDE\SODIUM LACTATE
     Indication: CHRONIC KIDNEY DISEASE
     Dosage: PERITONEAL DIALYSIS
     Dates: start: 20131101

REACTIONS (4)
  - Headache [None]
  - Neck pain [None]
  - Intracranial aneurysm [None]
  - Vomiting [None]

NARRATIVE: CASE EVENT DATE: 20131102
